FAERS Safety Report 21850484 (Version 1)
Quarter: 2023Q1

REPORT INFORMATION
  Report Type: Spontaneous
  Country: US (occurrence: US)
  Receive Date: 20230111
  Receipt Date: 20230111
  Transmission Date: 20230418
  Serious: Yes (Other)
  Sender: FDA-Public Use
  Company Number: US-BIOMARINAP-US-2023-147905

PATIENT

DRUGS (1)
  1. PALYNZIQ [Suspect]
     Active Substance: PEGVALIASE-PQPZ
     Indication: Phenylketonuria
     Dosage: 40 UNK, QD
     Route: 058

REACTIONS (3)
  - Anaphylactic reaction [Unknown]
  - Heart rate increased [Unknown]
  - Flushing [Unknown]

NARRATIVE: CASE EVENT DATE: 20230107
